FAERS Safety Report 14313451 (Version 1)
Quarter: 2017Q4

REPORT INFORMATION
  Report Type: Spontaneous
  Country: US (occurrence: US)
  Receive Date: 20171220
  Receipt Date: 20171220
  Transmission Date: 20180321
  Serious: No
  Sender: FDA-Public Use
  Company Number: None

PATIENT
  Sex: Female

DRUGS (4)
  1. FISH OIL [Concomitant]
     Active Substance: FISH OIL
  2. MAXIMUM STRENGTH OTC HYDROCORTISONE OINTMENT [Suspect]
     Active Substance: HYDROCORTISONE
     Indication: ECZEMA
     Route: 061
  3. VITAMIN D [Concomitant]
     Active Substance: CHOLECALCIFEROL
  4. CHORTRIMETON [Concomitant]

REACTIONS (5)
  - Skin irritation [None]
  - Skin haemorrhage [None]
  - Skin atrophy [None]
  - Skin fissures [None]
  - Peripheral swelling [None]
